FAERS Safety Report 16764584 (Version 1)
Quarter: 2019Q3

REPORT INFORMATION
  Report Type: Report from Study
  Country: GT (occurrence: GT)
  Receive Date: 20190902
  Receipt Date: 20190902
  Transmission Date: 20191005
  Serious: Yes (Life-Threatening)
  Sender: FDA-Public Use
  Company Number: PHHY2019GT203519

PATIENT
  Age: 75 Year
  Sex: Female

DRUGS (3)
  1. CO-DIOVAN [Suspect]
     Active Substance: HYDROCHLOROTHIAZIDE\VALSARTAN
     Dosage: 1 DF (HYDROCHLOROTHIAZIDE 25 MG, VALSARTAN 320 MG), UNK
     Route: 065
  2. CO-DIOVAN [Suspect]
     Active Substance: HYDROCHLOROTHIAZIDE\VALSARTAN
     Dosage: 0.5 DF (HYDROCHLOROTHIAZIDE 25 MG, VALSARTAN 320 MG), UNK
     Route: 065
  3. CO-DIOVAN [Suspect]
     Active Substance: HYDROCHLOROTHIAZIDE\VALSARTAN
     Indication: PRODUCT USED FOR UNKNOWN INDICATION
     Dosage: 1 DF (HYDROCHLOROTHIAZIDE 12.5 MG, VALSARTAN 320 MG), UNK
     Route: 065

REACTIONS (6)
  - Coma [Recovering/Resolving]
  - Malaise [Recovering/Resolving]
  - Hypotension [Recovering/Resolving]
  - Wrong technique in product usage process [Unknown]
  - Hernia [Recovering/Resolving]
  - Hypertension [Recovering/Resolving]
